FAERS Safety Report 14473693 (Version 1)
Quarter: 2018Q1

REPORT INFORMATION
  Report Type: Spontaneous
  Country: US (occurrence: US)
  Receive Date: 20180201
  Receipt Date: 20180201
  Transmission Date: 20180509
  Serious: No
  Sender: FDA-Public Use
  Company Number: US-ASTRAZENECA-2018SE12000

PATIENT
  Age: 21166 Day
  Sex: Female
  Weight: 83.9 kg

DRUGS (4)
  1. LISINOPRIL. [Suspect]
     Active Substance: LISINOPRIL
     Indication: HYPERTENSION
     Route: 048
  2. BYDUREON [Suspect]
     Active Substance: EXENATIDE
     Indication: DIABETES MELLITUS INADEQUATE CONTROL
     Route: 058
     Dates: start: 20180108
  3. BYETTA [Suspect]
     Active Substance: EXENATIDE
     Indication: DIABETES MELLITUS INADEQUATE CONTROL
     Dosage: UNKNWN, TWO TIMES A DAY
     Route: 058
     Dates: end: 201712
  4. METFORMIN [Concomitant]
     Active Substance: METFORMIN HYDROCHLORIDE
     Indication: DIABETES MELLITUS
     Route: 048

REACTIONS (10)
  - Paraesthesia [Unknown]
  - Type 2 diabetes mellitus [Not Recovered/Not Resolved]
  - Injection site extravasation [Unknown]
  - Renal disorder [Not Recovered/Not Resolved]
  - Eye disorder [Unknown]
  - Pruritus generalised [Unknown]
  - Seasonal allergy [Not Recovered/Not Resolved]
  - Injection site haemorrhage [Unknown]
  - Creatinine urine increased [Unknown]
  - Wrong technique in product usage process [Recovered/Resolved]

NARRATIVE: CASE EVENT DATE: 20180108
